FAERS Safety Report 9717020 (Version 2)
Quarter: 2014Q1

REPORT INFORMATION
  Report Type: Report from Study
  Country: CA (occurrence: CA)
  Receive Date: 20131127
  Receipt Date: 20140328
  Transmission Date: 20141002
  Serious: Yes (Other)
  Sender: FDA-Public Use
  Company Number: CA-JNJFOC-20131112385

PATIENT
  Age: 57 Year
  Sex: Male
  Weight: 82 kg

DRUGS (19)
  1. REMICADE [Suspect]
     Indication: CROHN^S DISEASE
     Route: 042
  2. REMICADE [Suspect]
     Indication: CROHN^S DISEASE
     Dosage: INFLIXIMAB 5X100 MG 10 ML PER VIAL??THE PATIENT RECEIVED A TOTAL OF 60 INFUSIONS
     Route: 042
     Dates: start: 20131119
  3. REMICADE [Suspect]
     Indication: CROHN^S DISEASE
     Dosage: INFLIXIMAB 5X100 MG 10 ML PER VIAL
     Route: 042
     Dates: start: 20110329
  4. HYDROMORPHONE CONTIN [Concomitant]
     Dosage: 1 CAPSULE EVEY EVENING-NIGHT BED IN
     Route: 065
  5. HYDROMORPHONE CONTIN [Concomitant]
     Dosage: EVERY MORNING
     Route: 065
  6. PENTASA [Concomitant]
     Dosage: 1-2 DOSE PER DAY: DEPENDENDENT ON FEACES CONSISTENCY.
     Route: 065
  7. CIPRALEX [Concomitant]
     Indication: ANXIETY
     Dosage: 1 TABLET TWICE DAILY MORNING AND EVENING
     Route: 065
  8. COVERSYL [Concomitant]
     Indication: BLOOD PRESSURE
     Dosage: 1 TABLET IN EVENING
     Route: 065
  9. HYDROMORPHONE [Concomitant]
     Indication: PAIN
     Route: 065
  10. CLOBETASOL [Concomitant]
     Route: 065
  11. NASONEX [Concomitant]
     Route: 065
  12. OLOPATADINE [Concomitant]
     Route: 065
  13. B12 [Concomitant]
     Indication: VITAMIN SUPPLEMENTATION
     Route: 065
  14. MULTIVITAMINS [Concomitant]
     Indication: VITAMIN SUPPLEMENTATION
     Route: 065
  15. VITAMIN D [Concomitant]
     Indication: VITAMIN SUPPLEMENTATION
     Route: 065
  16. PROTEIN SUPPLEMENTS [Concomitant]
     Dosage: 1 OR MORE PER DAY, MORNING AND EVENING
     Route: 065
  17. LACTIC ACID [Concomitant]
     Dosage: DOSE:500  OVE THE COURSE OF DAY
     Route: 065
  18. SANDOSTATIN [Concomitant]
     Route: 065
  19. IMODIUM [Concomitant]
     Dosage: SUPPER AND ^HS^
     Route: 048

REACTIONS (2)
  - Hernia [Not Recovered/Not Resolved]
  - Colon cancer stage III [Not Recovered/Not Resolved]
